FAERS Safety Report 6423391-9 (Version None)
Quarter: 2009Q4

REPORT INFORMATION
  Report Type: 
  Country: None (occurrence: None)
  Receive Date: 20091102
  Receipt Date: 20091027
  Transmission Date: 20100525
  Serious: Yes (Hospitalization)
  Sender: FDA-Public Use
  Company Number: A0810744A

PATIENT
  Age: 76 Year
  Sex: Female
  Weight: 77.6 kg

DRUGS (2)
  1. ARIXTRA [Suspect]
     Indication: DRUG ADMINISTRATION ERROR
     Dosage: 2.5MG PER DAY
     Route: 058
     Dates: start: 20090925, end: 20091004
  2. ANTIBIOTICS [Concomitant]

REACTIONS (2)
  - DRUG ADMINISTRATION ERROR [None]
  - OFF LABEL USE [None]
